FAERS Safety Report 9772499 (Version 1)
Quarter: 2013Q4

REPORT INFORMATION
  Report Type: Spontaneous
  Country: FR (occurrence: None)
  Receive Date: 20131217
  Receipt Date: 20131217
  Transmission Date: 20140711
  Serious: Yes (Death)
  Sender: FDA-Public Use
  Company Number: 1935221

PATIENT
  Age: 78 Year
  Sex: Male

DRUGS (2)
  1. CARBOPLATIN [Suspect]
     Indication: BLADDER NEOPLASM
     Route: 041
     Dates: start: 20120525, end: 20120525
  2. GEMZAR [Suspect]
     Indication: BLADDER NEOPLASM
     Dosage: 2000 MG MILLIGRAM(S), 1 CYCLICAL, INTRAVENOUS
     Route: 042
     Dates: start: 20120525, end: 20120601

REACTIONS (9)
  - Septic shock [None]
  - Pancytopenia [None]
  - Hyperkalaemia [None]
  - Colitis [None]
  - Sepsis [None]
  - Systemic candida [None]
  - Bacterial test positive [None]
  - Candida infection [None]
  - Culture urine positive [None]
